FAERS Safety Report 4543959-4 (Version None)
Quarter: 2005Q1

REPORT INFORMATION
  Report Type: 
  Country: None (occurrence: None)
  Receive Date: 20050103
  Receipt Date: 20040329
  Transmission Date: 20050727
  Serious: Yes (Hospitalization, Other)
  Sender: FDA-Public Use
  Company Number: GXKR2004GB00534

PATIENT
  Age: 54 Year
  Sex: Female
  Weight: 59 kg

DRUGS (2)
  1. AZATHIOPRINE (NGX)(AZATHIOPRINE) UNKNOWN [Suspect]
     Dates: start: 19930101, end: 20000101
  2. PREDNISOLONE [Suspect]
     Dates: start: 19930101, end: 20000101

REACTIONS (6)
  - ANAL CANCER [None]
  - DYSPAREUNIA [None]
  - FEBRILE NEUTROPENIA [None]
  - PANCYTOPENIA [None]
  - PROTEIN URINE PRESENT [None]
  - SKIN EXFOLIATION [None]
